FAERS Safety Report 13035564 (Version 1)
Quarter: 2016Q4

REPORT INFORMATION
  Report Type: Spontaneous
  Country: SI (occurrence: SI)
  Receive Date: 20161216
  Receipt Date: 20161216
  Transmission Date: 20170207
  Serious: Yes (Hospitalization, Other)
  Sender: FDA-Public Use
  Company Number: SI-AMGEN-SVNSP2016168200

PATIENT
  Age: 88 Year
  Sex: Female

DRUGS (12)
  1. CALCIUM CARBONATE. [Concomitant]
     Active Substance: CALCIUM CARBONATE
     Dosage: 1 G, UNK
  2. DORETA [Concomitant]
     Dosage: 37.5/325 MG, AS NECESSARY
  3. PLIVIT D3 [Concomitant]
     Active Substance: CHOLECALCIFEROL
     Dosage: (7 DROPS), QD
  4. AMOKSIKLAV [Concomitant]
     Active Substance: AMOXICILLIN\CLAVULANATE POTASSIUM
     Dosage: 1000 MG/12 SOLVO, UNK
  5. AMLESSA [Concomitant]
     Dosage: 4/10 MG, QD
  6. ASENTRA [Concomitant]
     Active Substance: SERTRALINE HYDROCHLORIDE
     Dosage: 50 MG, QD
  7. PANTOPRAZOL [Concomitant]
     Active Substance: PANTOPRAZOLE SODIUM
     Dosage: 40 MG, QD
  8. CONCOR [Concomitant]
     Active Substance: BISOPROLOL FUMARATE
     Dosage: 2.5 MG, QD
  9. PROLIA [Suspect]
     Active Substance: DENOSUMAB
     Indication: OSTEOPOROSIS POSTMENOPAUSAL
     Dosage: 60 MG, Q6MO
     Route: 058
     Dates: start: 20140508
  10. PREXANIL [Concomitant]
     Active Substance: PERINDOPRIL
     Dosage: 4 MG, BID
  11. FERRUM LEK [Concomitant]
     Active Substance: FERROUS HYDROXIDE
     Dosage: 100 MG, UNK
  12. CARDURAXL [Concomitant]
     Dosage: 4 MG, UNK

REACTIONS (11)
  - Escherichia sepsis [Unknown]
  - Urinary tract infection [Unknown]
  - Acute kidney injury [Unknown]
  - Vomiting [Unknown]
  - Mobility decreased [Unknown]
  - Cystitis noninfective [Unknown]
  - Gastrointestinal pain [Unknown]
  - Thrombocytopenia [Unknown]
  - Nausea [Unknown]
  - Arthralgia [Not Recovered/Not Resolved]
  - Cardiac failure [Unknown]

NARRATIVE: CASE EVENT DATE: 2016
